FAERS Safety Report 9231192 (Version 1)
Quarter: 2013Q2

REPORT INFORMATION
  Report Type: Spontaneous
  Country: US (occurrence: US)
  Receive Date: 20130415
  Receipt Date: 20130415
  Transmission Date: 20140414
  Serious: Yes (Other)
  Sender: FDA-Public Use
  Company Number: US-PFIZER INC-2013113146

PATIENT
  Sex: Female

DRUGS (5)
  1. ALDACTONE [Suspect]
     Dosage: UNK
  2. ALPRAZOLAM [Suspect]
     Indication: PANIC ATTACK
     Dosage: UNK
  3. LEVAQUIN [Concomitant]
     Dosage: UNK
  4. OPANA [Concomitant]
     Dosage: 20 MG, UNK
  5. OXYCODONE [Concomitant]
     Dosage: UNK

REACTIONS (6)
  - Convulsion [Unknown]
  - Drug ineffective [Unknown]
  - Gallbladder disorder [Unknown]
  - Insomnia [Unknown]
  - Diarrhoea [Unknown]
  - General physical health deterioration [Unknown]
